FAERS Safety Report 9254931 (Version 2)
Quarter: 2014Q1

REPORT INFORMATION
  Report Type: Spontaneous
  Country: US (occurrence: US)
  Receive Date: 20130425
  Receipt Date: 20140317
  Transmission Date: 20141002
  Serious: Yes (Other)
  Sender: FDA-Public Use
  Company Number: US-BAYER-2013-050068

PATIENT
  Age: 22 Year
  Sex: Female

DRUGS (12)
  1. BEYAZ [Suspect]
     Indication: CONTRACEPTION
     Dosage: UNK
     Route: 048
     Dates: start: 2011
  2. CITALOPRAM [Concomitant]
     Dosage: 40 MG, UNK
     Route: 048
     Dates: start: 20120618, end: 20121214
  3. TRAMADOL [Concomitant]
     Dosage: 50 MG, UNK
  4. NABUMETONE [Concomitant]
  5. KEFLEX [Concomitant]
  6. ADDERALL [Concomitant]
     Dosage: 25 MG, UNK
  7. AMPHETAMINE SALTS [Concomitant]
     Dosage: 10 MG, UNK
  8. ALBUTEROL [Concomitant]
     Dosage: AS NEEDED
  9. TRAZODONE [Concomitant]
     Dosage: 100 MG, AT BEDTIME
     Route: 048
  10. ADVAIR DISKUS [Concomitant]
     Dosage: 500 MCG-50 MG PER DOSE, TWICE DAILY
  11. NASACORT AQ [Concomitant]
     Dosage: 55 MCG, 1 SPRAY TWICE DAILY
  12. CYMBALTA [Concomitant]
     Dosage: 30 MG, UNK

REACTIONS (3)
  - Thrombosis [None]
  - Phlebitis [None]
  - Deep vein thrombosis [None]
